FAERS Safety Report 9051979 (Version 1)
Quarter: 2013Q1

REPORT INFORMATION
  Report Type: Spontaneous
  Country: US (occurrence: None)
  Receive Date: 20130130
  Receipt Date: 20130130
  Transmission Date: 20140127
  Serious: No
  Sender: FDA-Public Use
  Company Number: None

PATIENT
  Age: 75 Year
  Sex: Male
  Weight: 85.28 kg

DRUGS (2)
  1. CARIMUNE [Suspect]
     Indication: HYPOGAMMAGLOBULINAEMIA
     Dosage: Q4WK, IV
  2. CARIMUNE [Suspect]
     Route: 042

REACTIONS (5)
  - Infusion related reaction [None]
  - Feeling cold [None]
  - Tremor [None]
  - Cough [None]
  - Oxygen saturation decreased [None]
